FAERS Safety Report 10434234 (Version 2)
Quarter: 2014Q3

REPORT INFORMATION
  Report Type: Spontaneous
  Country: CA (occurrence: CA)
  Receive Date: 20140905
  Receipt Date: 20140905
  Transmission Date: 20150326
  Serious: Yes (Other)
  Sender: FDA-Public Use
  Company Number: CA-ASTRAZENECA-2014SE57498

PATIENT
  Age: 37 Year
  Sex: Female

DRUGS (3)
  1. PRE-NATAL VITAMIN [Concomitant]
     Dosage: DAILY
  2. ZOLADEX [Suspect]
     Active Substance: GOSERELIN ACETATE
     Indication: ENDOMETRIOSIS
     Route: 058
     Dates: start: 201203, end: 201206
  3. ZOLADEX [Suspect]
     Active Substance: GOSERELIN ACETATE
     Indication: ENDOMETRIOSIS
     Route: 058
     Dates: start: 201407, end: 201409

REACTIONS (4)
  - Musculoskeletal stiffness [Unknown]
  - Carbohydrate antigen 125 increased [Unknown]
  - Headache [Recovered/Resolved]
  - Injection site bruising [Recovered/Resolved]

NARRATIVE: CASE EVENT DATE: 201203
